FAERS Safety Report 15505114 (Version 1)
Quarter: 2018Q4

REPORT INFORMATION
  Report Type: Spontaneous
  Country: US (occurrence: US)
  Receive Date: 20181010
  Receipt Date: 20181010
  Transmission Date: 20190205
  Serious: Yes (Hospitalization)
  Sender: FDA-Public Use
  Company Number: None

PATIENT
  Sex: Female

DRUGS (15)
  1. PERCOCET [Concomitant]
     Active Substance: ACETAMINOPHEN\OXYCODONE HYDROCHLORIDE
     Dates: start: 20180828
  2. ZOLPIDEM [Concomitant]
     Active Substance: ZOLPIDEM\ZOLPIDEM TARTRATE
     Dates: start: 20180917
  3. HUMIRA [Suspect]
     Active Substance: ADALIMUMAB
     Indication: RHEUMATOID ARTHRITIS
     Route: 058
     Dates: start: 20180508
  4. VITAMIN B12 1000MCG [Concomitant]
  5. FISH OIL 500MG [Concomitant]
  6. TRINTELLIX [Concomitant]
     Active Substance: VORTIOXETINE HYDROBROMIDE
     Dates: start: 20180803
  7. MULTIVITAMIN [Concomitant]
     Active Substance: VITAMINS
  8. NOVOLOG [Concomitant]
     Active Substance: INSULIN ASPART
     Dates: start: 20180726
  9. TRADJENTA [Concomitant]
     Active Substance: LINAGLIPTIN
     Dates: start: 20180803
  10. PREDNISONE 10MG [Concomitant]
     Active Substance: PREDNISONE
     Dates: start: 20181008
  11. DIAZEPAM 5MG [Concomitant]
     Active Substance: DIAZEPAM
     Dates: start: 20181009
  12. OMEPRAZOLE 20MG [Concomitant]
     Active Substance: OMEPRAZOLE
     Dates: start: 20180823
  13. TOUJEO 300IU/ML [Concomitant]
     Dates: start: 20180821
  14. AMLODIPINE [Concomitant]
     Active Substance: AMLODIPINE BESYLATE
     Dates: start: 20180716
  15. HYDROCHLOROTHIAZIDE 25MG [Concomitant]
     Active Substance: HYDROCHLOROTHIAZIDE
     Dates: start: 20180520

REACTIONS (2)
  - Skin disorder [None]
  - Skin irritation [None]
